FAERS Safety Report 4746830-8 (Version None)
Quarter: 2005Q3

REPORT INFORMATION
  Report Type: 
  Country: None (occurrence: None)
  Receive Date: 20050815
  Receipt Date: 20000728
  Transmission Date: 20060218
  Serious: Yes (Hospitalization, Other)
  Sender: FDA-Public Use
  Company Number: USA0507102135

PATIENT
  Age: 19 Year
  Sex: Female

DRUGS (6)
  1. HUMALOG [Suspect]
     Dates: start: 19980101
  2. HUMULIN N [Suspect]
     Dates: start: 19980101, end: 20050301
  3. ASACOL [Concomitant]
  4. PRENATAL VITAMINS [Concomitant]
  5. SULFASALAZINE [Concomitant]
  6. HUMULIN L [Suspect]

REACTIONS (6)
  - CROHN'S DISEASE [None]
  - DRUG EXPOSURE DURING PREGNANCY [None]
  - LIMB DISCOMFORT [None]
  - OEDEMA PERIPHERAL [None]
  - PREGNANCY [None]
  - PREMATURE LABOUR [None]
